FAERS Safety Report 6177467-4 (Version None)
Quarter: 2009Q2

REPORT INFORMATION
  Report Type: 
  Country: None (occurrence: None)
  Receive Date: 20090501
  Receipt Date: 20090501
  Transmission Date: 20091009
  Serious: Yes (Hospitalization, Other)
  Sender: FDA-Public Use
  Company Number: None

PATIENT
  Sex: Female
  Weight: 48.2 kg

DRUGS (24)
  1. VINCRISTINE [Suspect]
     Indication: LEUKAEMIA PLASMACYTIC
     Dosage: 0.4MG IV DAILY
     Route: 042
     Dates: start: 20090116, end: 20090120
  2. HEPARIN [Concomitant]
  3. APAP TAB [Concomitant]
  4. ACYCLOVIR [Concomitant]
  5. CODEINE/GUAIFENEM [Concomitant]
  6. DAPSONE [Concomitant]
  7. BENADRYL [Concomitant]
  8. DULOXETINE [Concomitant]
  9. DIFLUCAN [Concomitant]
  10. GUAIFENESIN [Concomitant]
  11. INSULIN ASPART [Concomitant]
  12. LANSOPRAZOLE [Concomitant]
  13. LORAZEPAM [Concomitant]
  14. NYSTATIN [Concomitant]
  15. ONDANSETRON [Concomitant]
  16. OXYCODONE HCL [Concomitant]
  17. PEG [Concomitant]
  18. POTASSIUM CHLORIDE [Concomitant]
  19. SENNA [Concomitant]
  20. TRIAMCINOLONE [Concomitant]
  21. BUDESONIDE [Concomitant]
  22. CYTOXAN [Concomitant]
  23. ADRIAMYCIN RDF [Concomitant]
  24. DEXAMETHASONE (CVAD) [Concomitant]

REACTIONS (2)
  - HYPOAESTHESIA [None]
  - PARAESTHESIA [None]
